FAERS Safety Report 25608080 (Version 1)
Quarter: 2025Q3

REPORT INFORMATION
  Report Type: Report from Study
  Country: US (occurrence: US)
  Receive Date: 20250725
  Receipt Date: 20250725
  Transmission Date: 20251020
  Serious: Yes (Death, Hospitalization, Other)
  Sender: PFIZER
  Company Number: US-PFIZER INC-202500040615

PATIENT
  Age: 57 Year
  Sex: Female

DRUGS (14)
  1. BRAFTOVI [Suspect]
     Active Substance: ENCORAFENIB
     Dosage: 300 MG, DAILY (TAKE 300MG BY MOUTH EVERY DAY)
     Route: 048
     Dates: start: 20250128, end: 20250413
  2. BRAFTOVI [Suspect]
     Active Substance: ENCORAFENIB
     Dosage: 75MG; TAKE 4 CAPSULES (300MG) BY MOUTH DAILY
     Route: 048
     Dates: start: 20250128
  3. BRAFTOVI [Suspect]
     Active Substance: ENCORAFENIB
     Dosage: 75MG CAP. TAKE 4 CAPSULES (300MG) BY MOUTH DAILY
     Route: 048
  4. DOCUSATE SODIUM [Concomitant]
     Active Substance: DOCUSATE SODIUM
  5. FERROUS SULFATE [Concomitant]
     Active Substance: FERROUS SULFATE
  6. LONSURF [Concomitant]
     Active Substance: TIPIRACIL HYDROCHLORIDE\TRIFLURIDINE
  7. LEVOFLOXACIN [Concomitant]
     Active Substance: LEVOFLOXACIN
  8. METFORMIN [Concomitant]
     Active Substance: METFORMIN HYDROCHLORIDE
  9. MILK OF MAGNESIA [Concomitant]
     Active Substance: MAGNESIUM HYDROXIDE
  10. MORPHINE SULFATE [Concomitant]
     Active Substance: MORPHINE SULFATE
  11. ONDANSETRON [Concomitant]
     Active Substance: ONDANSETRON
  12. OXYCODONE [Concomitant]
     Active Substance: OXYCODONE
  13. OMEPRAZOLE [Concomitant]
     Active Substance: OMEPRAZOLE
  14. SUCRALFATE [Concomitant]
     Active Substance: SUCRALFATE

REACTIONS (5)
  - Death [Fatal]
  - Malignant neoplasm progression [Unknown]
  - Muscle spasms [Not Recovered/Not Resolved]
  - Hypertransaminasaemia [Unknown]
  - Anaemia [Unknown]
